FAERS Safety Report 9670160 (Version 2)
Quarter: 2013Q4

REPORT INFORMATION
  Report Type: Spontaneous
  Country: IT (occurrence: IT)
  Receive Date: 20131105
  Receipt Date: 20131105
  Transmission Date: 20140711
  Serious: Yes (Other)
  Sender: FDA-Public Use
  Company Number: PHHY2013IT112953

PATIENT
  Age: 76 Year
  Sex: Female

DRUGS (2)
  1. TICLOPIDINE [Suspect]
     Indication: CAROTID ARTERY DISEASE
     Dosage: 500 MG, QD
     Route: 048
     Dates: start: 20130909, end: 20130911
  2. VASOTERIC [Concomitant]
     Indication: HYPERTENSION

REACTIONS (1)
  - Hypertensive crisis [Recovered/Resolved]
